FAERS Safety Report 12364244 (Version 1)
Quarter: 2016Q2

REPORT INFORMATION
  Report Type: Spontaneous
  Country: FR (occurrence: FR)
  Receive Date: 20160512
  Receipt Date: 20160512
  Transmission Date: 20160815
  Serious: Yes (Other)
  Sender: FDA-Public Use
  Company Number: FR-TEVA-657046ISR

PATIENT
  Age: 60 Year

DRUGS (2)
  1. ESTREVA [Suspect]
     Active Substance: ESTRADIOL
  2. DUPHASTON [Suspect]
     Active Substance: DYDROGESTERONE

REACTIONS (1)
  - Optic neuritis [Unknown]
